FAERS Safety Report 6821699-6 (Version None)
Quarter: 2010Q3

REPORT INFORMATION
  Report Type: 
  Country: None (occurrence: None)
  Receive Date: 20100702
  Receipt Date: 20100617
  Transmission Date: 20110219
  Serious: Yes (Hospitalization)
  Sender: FDA-Public Use
  Company Number: 626960

PATIENT
  Age: 64 Year
  Sex: Female
  Weight: 68 kg

DRUGS (4)
  1. MIDAZOLAM HCL [Suspect]
     Indication: PRODUCT USED FOR UNKNOWN INDICATION
     Dosage: 4 MG MILLIGRAM(S)
     Dates: start: 20100218
  2. THIOPENTAL SODIUM [Suspect]
     Indication: PRODUCT USED FOR UNKNOWN INDICATION
     Dosage: 250 MG MILLIGRAM(S)
     Dates: start: 20080218
  3. ALFENTANIL [Suspect]
     Indication: PRODUCT USED FOR UNKNOWN INDICATION
     Dosage: 500 MG MILLIGRAM(S)
  4. (SUXAMETHONIUM) [Suspect]
     Indication: PRODUCT USED FOR UNKNOWN INDICATION
     Dosage: 100 MG MILLIGRAM(S)
     Dates: start: 20080218

REACTIONS (1)
  - ANAPHYLACTIC REACTION [None]
